FAERS Safety Report 10016834 (Version 1)
Quarter: 2014Q1

REPORT INFORMATION
  Report Type: Spontaneous
  Country: US (occurrence: US)
  Receive Date: 20140318
  Receipt Date: 20140318
  Transmission Date: 20141002
  Serious: Yes (Hospitalization)
  Sender: FDA-Public Use
  Company Number: US-ROCHE-1362793

PATIENT
  Sex: Female

DRUGS (23)
  1. XOLAIR [Suspect]
     Indication: ASTHMA
     Route: 058
  2. SINGULAIR [Concomitant]
     Route: 065
  3. FLOVENT [Concomitant]
     Dosage: AS NEEDED
     Route: 065
  4. PREDNISONE [Concomitant]
     Route: 065
  5. ATROVENT [Concomitant]
     Route: 055
  6. VENTOLIN [Concomitant]
     Dosage: AS NEEDED
     Route: 055
  7. EPIPEN [Concomitant]
     Route: 065
  8. NASONEX [Concomitant]
     Dosage: AS NEEDED
     Route: 065
  9. BENADRYL (UNITED STATES) [Concomitant]
     Dosage: AS NEEDED
     Route: 065
  10. ZYRTEC [Concomitant]
     Dosage: AT BEDTIME
     Route: 065
  11. NEXIUM [Concomitant]
     Route: 065
  12. CREON [Concomitant]
     Dosage: 1200U
     Route: 065
  13. PHENERGAN [Concomitant]
     Route: 054
  14. COLACE [Concomitant]
     Dosage: AS NEEDED
     Route: 065
  15. GLYCOLAX [Concomitant]
     Dosage: AS NEEDED
     Route: 065
  16. DILAUDID [Concomitant]
     Dosage: AS NEEDED
     Route: 065
  17. TOPAMAX [Concomitant]
     Dosage: EVERY AM
     Route: 065
  18. MYSOLINE [Concomitant]
     Dosage: AT BEDTIME
     Route: 065
  19. ACYCLOVIR [Concomitant]
     Dosage: EVERY AM
     Route: 065
  20. SYNTHROID [Concomitant]
     Route: 065
  21. TRIMETREXATE [Concomitant]
     Route: 065
  22. VERAPAMIL ER [Concomitant]
     Dosage: IN AM
     Route: 065
  23. FLEXERIL (UNITED STATES) [Concomitant]
     Route: 065

REACTIONS (4)
  - Pneumonia viral [Unknown]
  - Erythema [Unknown]
  - Local swelling [Unknown]
  - Arthralgia [Unknown]
